FAERS Safety Report 5096572-7 (Version None)
Quarter: 2006Q3

REPORT INFORMATION
  Report Type: 
  Country: None (occurrence: None)
  Receive Date: 20060831
  Receipt Date: 20060818
  Transmission Date: 20061208
  Serious: Yes (Other)
  Sender: FDA-Public Use
  Company Number: 2006101694

PATIENT
  Sex: Female

DRUGS (1)
  1. VFEND [Suspect]
     Indication: FUNGAL INFECTION
     Dates: start: 20060801

REACTIONS (2)
  - BLISTER [None]
  - SKIN FRAGILITY [None]
